FAERS Safety Report 16952223 (Version 5)
Quarter: 2020Q3

REPORT INFORMATION
  Report Type: Report from Study
  Country: CA (occurrence: CA)
  Receive Date: 20191023
  Receipt Date: 20200728
  Transmission Date: 20201102
  Serious: Yes (Hospitalization, Other)
  Sender: FDA-Public Use
  Company Number: CA-GLAXOSMITHKLINE-CA2019AMR189442

PATIENT
  Sex: Male
  Weight: 94 kg

DRUGS (7)
  1. NUCALA [Suspect]
     Active Substance: MEPOLIZUMAB
     Indication: ASTHMA
     Dosage: 100 MG, Z(MONTHLY)
     Route: 042
     Dates: start: 20191205
  2. ALVESCO [Suspect]
     Active Substance: CICLESONIDE
     Indication: PRODUCT USED FOR UNKNOWN INDICATION
     Dosage: 400 UG, BID(2 PUFFS)
     Route: 055
     Dates: start: 20180101
  3. SPIRIVA RESPIMAT [Suspect]
     Active Substance: TIOTROPIUM BROMIDE
     Indication: PRODUCT USED FOR UNKNOWN INDICATION
     Dosage: 5 UG, QD(2 PUFFS)
     Route: 055
     Dates: start: 20180101
  4. SINGULAIR [Suspect]
     Active Substance: MONTELUKAST SODIUM
     Indication: PRODUCT USED FOR UNKNOWN INDICATION
     Dosage: UNK
  5. SALBUTAMOL SULPHATE [Suspect]
     Active Substance: ALBUTEROL SULFATE
     Indication: PRODUCT USED FOR UNKNOWN INDICATION
     Dosage: UNK, 2?4 PUFFS EVERY 4?6 HOURS WHEN NECESSARY
  6. ZENHALE [Suspect]
     Active Substance: FORMOTEROL FUMARATE\MOMETASONE FUROATE
     Indication: PRODUCT USED FOR UNKNOWN INDICATION
     Dosage: 400 UG, BID(2 PUFFS), 200/5 UG
     Route: 055
     Dates: start: 20160101
  7. XOLAIR [Suspect]
     Active Substance: OMALIZUMAB
     Indication: PRODUCT USED FOR UNKNOWN INDICATION
     Dosage: 225 MG, UNK, EVERY 2 WEEKS

REACTIONS (23)
  - Obstructive airways disorder [Unknown]
  - Rib fracture [Unknown]
  - Exercise tolerance decreased [Unknown]
  - Cough [Unknown]
  - Dyspnoea exertional [Unknown]
  - Fall [Unknown]
  - Renal impairment [Unknown]
  - Asthma [Recovering/Resolving]
  - Eosinophil count increased [Unknown]
  - Sinusitis [Unknown]
  - Pain [Recovering/Resolving]
  - Nasopharyngitis [Unknown]
  - Dyspnoea [Unknown]
  - Gastrooesophageal reflux disease [Unknown]
  - Loss of personal independence in daily activities [Unknown]
  - Blood immunoglobulin E increased [Unknown]
  - Pneumonia streptococcal [Unknown]
  - Wheezing [Unknown]
  - Viral infection [Unknown]
  - Mitral valve disease [Unknown]
  - Vulval disorder [Unknown]
  - Heart rate [Unknown]
  - Fatigue [Unknown]
